FAERS Safety Report 9020983 (Version 1)
Quarter: 2013Q1

REPORT INFORMATION
  Report Type: Spontaneous
  Country: US (occurrence: US)
  Receive Date: 20130119
  Receipt Date: 20130119
  Transmission Date: 20140127
  Serious: No
  Sender: FDA-Public Use
  Company Number: US-ALLERGAN-1204683US

PATIENT
  Age: 47 Year
  Sex: Female

DRUGS (5)
  1. BOTOX COSMETIC [Suspect]
     Indication: SKIN WRINKLING
     Dosage: UNK
     Route: 030
     Dates: start: 20120217, end: 20120217
  2. BOTOX COSMETIC [Suspect]
     Indication: SKIN WRINKLING
  3. CLINDAMYCIN [Suspect]
     Indication: SKIN OPERATION
     Dosage: 300 MG, BID
     Route: 048
  4. MULTIVITAMIN                       /00097801/ [Concomitant]
     Indication: PRODUCT USED FOR UNKNOWN INDICATION
  5. FISH OIL [Concomitant]
     Indication: PRODUCT USED FOR UNKNOWN INDICATION

REACTIONS (12)
  - Cyst [Unknown]
  - Erythema [Not Recovered/Not Resolved]
  - Swelling face [Unknown]
  - Blister [Not Recovered/Not Resolved]
  - Rash erythematous [Not Recovered/Not Resolved]
  - Lip swelling [Unknown]
  - Thermal burn [Not Recovered/Not Resolved]
  - Rash [Recovered/Resolved]
  - Memory impairment [Unknown]
  - Burning sensation [Unknown]
  - Burning sensation [Unknown]
  - Headache [Unknown]
